FAERS Safety Report 5649698-0 (Version None)
Quarter: 2008Q1

REPORT INFORMATION
  Report Type: 
  Country: None (occurrence: None)
  Receive Date: 20080304
  Receipt Date: 20080206
  Transmission Date: 20080703
  Serious: No
  Sender: FDA-Public Use
  Company Number: US-BOEHRINGER INGELHEIM GMBH, GERMANY-2008-BP-01867BP

PATIENT
  Age: 78 Year
  Sex: Female

DRUGS (10)
  1. SPIRIVA [Suspect]
     Indication: CHRONIC OBSTRUCTIVE PULMONARY DISEASE
     Route: 048
     Dates: start: 20070101
  2. KCI [Concomitant]
  3. SPIRONOLACTONE [Concomitant]
     Indication: CARDIAC DISORDER
  4. CARVEDILOL [Concomitant]
     Indication: CARDIAC DISORDER
  5. WARFARIN SODIUM [Concomitant]
     Indication: CARDIAC ASSISTANCE DEVICE USER
  6. JANUVIA [Concomitant]
     Indication: DIABETES MELLITUS
  7. GABAPENTIN [Concomitant]
     Indication: PAIN IN EXTREMITY
  8. GEMFIBROZIL [Concomitant]
     Indication: CARDIAC DISORDER
  9. FUROSEMIDE [Concomitant]
  10. PREVACID [Concomitant]
     Indication: STOMACH DISCOMFORT

REACTIONS (4)
  - DRUG INEFFECTIVE [None]
  - INCORRECT ROUTE OF DRUG ADMINISTRATION [None]
  - RHINORRHOEA [None]
  - URINE ABNORMALITY [None]
